FAERS Safety Report 16046199 (Version 1)
Quarter: 2019Q1

REPORT INFORMATION
  Report Type: Spontaneous
  Country: US (occurrence: US)
  Receive Date: 20190307
  Receipt Date: 20190307
  Transmission Date: 20190418
  Serious: No
  Sender: FDA-Public Use
  Company Number: US-BAYER-2019-047202

PATIENT
  Age: 25 Year
  Sex: Female
  Weight: 31 kg

DRUGS (1)
  1. MIRALAX [Suspect]
     Active Substance: POLYETHYLENE GLYCOL 3350
     Dosage: UNK
     Route: 048
     Dates: end: 20190306

REACTIONS (2)
  - Poor quality product administered [None]
  - Product taste abnormal [Unknown]

NARRATIVE: CASE EVENT DATE: 20190306
